FAERS Safety Report 5630672-5 (Version None)
Quarter: 2008Q1

REPORT INFORMATION
  Report Type: 
  Country: None (occurrence: None)
  Receive Date: 20080213
  Receipt Date: 20080203
  Transmission Date: 20080703
  Serious: Yes (Other)
  Sender: FDA-Public Use
  Company Number: CHPA2008US02095

PATIENT
  Age: 68 Year
  Sex: Male

DRUGS (7)
  1. NICOTINE [Suspect]
     Dosage: 21MG, TRANSDERMAL 14MG, TRANSDERMAL
     Route: 062
     Dates: start: 20071229
  2. NICOTINE [Suspect]
     Dosage: 21MG, TRANSDERMAL 14MG, TRANSDERMAL
     Route: 062
     Dates: start: 20080201
  3. LIPITOR /NET/ (ATORVASTATIN CALCIUM) [Concomitant]
  4. CALCIUM CHANNEL BLOCKERS (NO INGREDIENTS/SUBSTANCES) [Concomitant]
  5. METFORMIN HCL [Concomitant]
  6. GLIMEPIRIDE [Concomitant]
  7. . [Concomitant]

REACTIONS (3)
  - BLOOD GLUCOSE INCREASED [None]
  - CONCOMITANT DISEASE AGGRAVATED [None]
  - LOSS OF CONSCIOUSNESS [None]
